FAERS Safety Report 7497025-9 (Version None)
Quarter: 2011Q2

REPORT INFORMATION
  Report Type: 
  Country: None (occurrence: None)
  Receive Date: 20110523
  Receipt Date: 20110520
  Transmission Date: 20111010
  Serious: Yes (Disabling, Congenital Anomaly)
  Sender: FDA-Public Use
  Company Number: DE-ABBOTT-11P-062-0727312-00

PATIENT

DRUGS (2)
  1. KEPPRA [Suspect]
     Indication: DRUG EXPOSURE DURING PREGNANCY
     Route: 064
  2. VALPROATE SODIUM [Suspect]
     Indication: DRUG EXPOSURE DURING PREGNANCY
     Route: 064

REACTIONS (6)
  - SMALL FOR DATES BABY [None]
  - DYSMORPHISM [None]
  - SPINAL DISORDER [None]
  - FINGER HYPOPLASIA [None]
  - BREAST MALFORMATION [None]
  - DRUG EXPOSURE DURING PREGNANCY [None]
